FAERS Safety Report 7349269-4 (Version None)
Quarter: 2011Q1

REPORT INFORMATION
  Report Type: 
  Country: None (occurrence: None)
  Receive Date: 20110225
  Receipt Date: 20110121
  Transmission Date: 20110831
  Serious: Yes (Hospitalization)
  Sender: FDA-Public Use
  Company Number: 316843

PATIENT
  Age: 49 Year
  Sex: Female
  Weight: 146.9 kg

DRUGS (14)
  1. TRAZODONE (TRAZODONE) [Concomitant]
  2. SERTRALINE (SERTRALINE) [Concomitant]
  3. GEMFIBROZIL [Concomitant]
  4. AMLODIPINE [Concomitant]
  5. METFORMIN (METFORMIN) [Concomitant]
  6. ACTOS [Concomitant]
  7. VICTOZA [Suspect]
     Indication: TYPE 2 DIABETES MELLITUS
     Dosage: 0.6 MG, QD, SUBCUTANEOUS, 1.2 MG, QD, SUBCUTANEOUS, 1.8 MG,QD, SUBCUTANEOUS, 1.2 MG,QD, SUBCUTANEOUS
     Route: 058
     Dates: start: 20100901, end: 20100901
  8. VICTOZA [Suspect]
     Indication: TYPE 2 DIABETES MELLITUS
     Dosage: 0.6 MG, QD, SUBCUTANEOUS, 1.2 MG, QD, SUBCUTANEOUS, 1.8 MG,QD, SUBCUTANEOUS, 1.2 MG,QD, SUBCUTANEOUS
     Route: 058
     Dates: start: 20100921, end: 20101011
  9. VICTOZA [Suspect]
     Indication: TYPE 2 DIABETES MELLITUS
     Dosage: 0.6 MG, QD, SUBCUTANEOUS, 1.2 MG, QD, SUBCUTANEOUS, 1.8 MG,QD, SUBCUTANEOUS, 1.2 MG,QD, SUBCUTANEOUS
     Route: 058
     Dates: start: 20100831
  10. VICTOZA [Suspect]
     Indication: TYPE 2 DIABETES MELLITUS
     Dosage: 0.6 MG, QD, SUBCUTANEOUS, 1.2 MG, QD, SUBCUTANEOUS, 1.8 MG,QD, SUBCUTANEOUS, 1.2 MG,QD, SUBCUTANEOUS
     Route: 058
     Dates: start: 20100916, end: 20100921
  11. RISPERDAL [Concomitant]
  12. BENZTROPINE MESYLATE [Concomitant]
  13. LISINOPRIL + HIDROCLOROTIAZIDA (HYDROCHLOROTHIAZIDE, LISINOPRIL) [Concomitant]
  14. LITHIUM CARBONATE [Concomitant]

REACTIONS (2)
  - NAUSEA [None]
  - PANCREATITIS ACUTE [None]
